FAERS Safety Report 6430769-6 (Version None)
Quarter: 2009Q4

REPORT INFORMATION
  Report Type: 
  Country: None (occurrence: None)
  Receive Date: 20091106
  Receipt Date: 20091027
  Transmission Date: 20100525
  Serious: Yes (Death, Hospitalization)
  Sender: FDA-Public Use
  Company Number: BE-ABBOTT-08P-013-0487784-00

PATIENT
  Sex: Female
  Weight: 52 kg

DRUGS (11)
  1. HUMIRA [Suspect]
     Indication: RHEUMATOID ARTHRITIS
     Route: 058
     Dates: start: 20080403, end: 20081030
  2. METHOTREXATE [Suspect]
     Indication: RHEUMATOID ARTHRITIS
     Route: 048
     Dates: start: 20080403, end: 20081106
  3. STEOVIT D3 [Concomitant]
     Indication: OSTEOPOROSIS
     Dates: start: 19980101
  4. NEXIUM [Concomitant]
     Indication: PROPHYLAXIS AGAINST GASTROINTESTINAL ULCER
     Dates: start: 20040101
  5. FOLIC ACID [Concomitant]
     Indication: VITAMIN SUPPLEMENTATION
     Dates: start: 20080405
  6. TENEST [Concomitant]
     Indication: DEPRESSION
     Dates: start: 20030101
  7. ISONIAZID [Concomitant]
     Indication: ANTIBIOTIC PROPHYLAXIS
     Dates: start: 20080320, end: 20080926
  8. BONIVA [Concomitant]
     Indication: OSTEOPOROSIS
     Dates: start: 20050101
  9. PERCODAN-DEMI [Concomitant]
     Indication: ARTHRALGIA
     Dates: start: 20080428
  10. VITAMIN B6 [Concomitant]
     Indication: ALOPECIA
     Dates: start: 20080509, end: 20080926
  11. SPIRIVA [Concomitant]
     Indication: TUBERCULOSIS
     Dates: start: 20080116

REACTIONS (11)
  - ACIDOSIS [None]
  - ASPERGILLOSIS [None]
  - ATRIAL FIBRILLATION [None]
  - BRONCHOPNEUMONIA [None]
  - CANDIDA SEPSIS [None]
  - CARDIAC FAILURE [None]
  - HAEMODYNAMIC INSTABILITY [None]
  - INFECTION [None]
  - ISCHAEMIC HEPATITIS [None]
  - RESPIRATORY FAILURE [None]
  - STRESS CARDIOMYOPATHY [None]
